FAERS Safety Report 7183810-X (Version None)
Quarter: 2010Q4

REPORT INFORMATION
  Report Type: 
  Country: None (occurrence: None)
  Receive Date: 20101222
  Receipt Date: 20101208
  Transmission Date: 20110411
  Serious: Yes (Hospitalization, Other)
  Sender: FDA-Public Use
  Company Number: US-ROCHE-727481

PATIENT
  Sex: Female
  Weight: 49.9 kg

DRUGS (2)
  1. ACCUTANE [Suspect]
     Indication: ACNE
     Route: 048
     Dates: start: 19950220
  2. ACCUTANE [Suspect]
     Route: 048
     Dates: start: 19950615, end: 19950620

REACTIONS (12)
  - BLOOD CHOLESTEROL INCREASED [None]
  - CROHN'S DISEASE [None]
  - DERMATITIS CONTACT [None]
  - ECZEMA [None]
  - GASTROINTESTINAL INJURY [None]
  - HEADACHE [None]
  - INTESTINAL OBSTRUCTION [None]
  - INTESTINAL PERFORATION [None]
  - LIP DRY [None]
  - PYODERMA GANGRENOSUM [None]
  - RECTAL FISSURE [None]
  - VISION BLURRED [None]
